FAERS Safety Report 7428643-1 (Version None)
Quarter: 2011Q2

REPORT INFORMATION
  Report Type: 
  Country: None (occurrence: None)
  Receive Date: 20110421
  Receipt Date: 20090609
  Transmission Date: 20111010
  Serious: No
  Sender: FDA-Public Use
  Company Number: 2009BI017599

PATIENT
  Sex: Female

DRUGS (1)
  1. TYSABRI [Suspect]
     Indication: MULTIPLE SCLEROSIS
     Route: 042
     Dates: start: 20081121

REACTIONS (9)
  - DRUG DEPENDENCE [None]
  - ASTHENIA [None]
  - MOBILITY DECREASED [None]
  - SLUGGISHNESS [None]
  - GENERAL SYMPTOM [None]
  - GAIT DISTURBANCE [None]
  - DEPRESSED MOOD [None]
  - MUSCULOSKELETAL DISORDER [None]
  - FATIGUE [None]
